FAERS Safety Report 22037776 (Version 9)
Quarter: 2023Q2

REPORT INFORMATION
  Report Type: Report from Study
  Country: BR (occurrence: BR)
  Receive Date: 20230227
  Receipt Date: 20230615
  Transmission Date: 20230722
  Serious: Yes (Hospitalization, Other)
  Sender: FDA-Public Use
  Company Number: BR-JNJFOC-20230202480

PATIENT
  Age: 46 Year
  Sex: Male
  Weight: 81 kg

DRUGS (4)
  1. SPRAVATO [Suspect]
     Active Substance: ESKETAMINE
     Indication: Major depression
     Dosage: 3 DEVICES (84 MG), TREATMENT START DATE WAS ALSO REPORTED AS 28-DEC-2022
     Dates: start: 20221221
  2. SPRAVATO [Suspect]
     Active Substance: ESKETAMINE
     Dosage: 3 DISPOSALS
  3. SPRAVATO [Suspect]
     Active Substance: ESKETAMINE
  4. SPRAVATO [Suspect]
     Active Substance: ESKETAMINE
     Dates: start: 20230401

REACTIONS (9)
  - Hospitalisation [Recovered/Resolved]
  - Delirium [Not Recovered/Not Resolved]
  - Suicidal ideation [Unknown]
  - Gastric disorder [Unknown]
  - Headache [Unknown]
  - Vomiting [Unknown]
  - Major depression [Unknown]
  - Diabetes mellitus inadequate control [Unknown]
  - Fall [Unknown]
